FAERS Safety Report 8531842-9 (Version None)
Quarter: 2012Q3

REPORT INFORMATION
  Report Type: 
  Country: None (occurrence: None)
  Receive Date: 20120723
  Receipt Date: 20120719
  Transmission Date: 20120928
  Serious: No
  Sender: FDA-Public Use
  Company Number: US-PFIZER INC-2012175222

PATIENT
  Sex: Male
  Weight: 120.18 kg

DRUGS (6)
  1. DIOVAN [Concomitant]
     Dosage: UNK
  2. AMLODIPINE [Concomitant]
     Dosage: UNK
  3. FLUOXETINE [Concomitant]
     Dosage: UNK
  4. VALIUM [Concomitant]
     Dosage: UNK
  5. LIPITOR [Suspect]
     Indication: BLOOD CHOLESTEROL INCREASED
     Dosage: 40 MG, 1X/DAY
     Route: 048
     Dates: end: 20120601
  6. COZAAR [Concomitant]
     Dosage: UNK

REACTIONS (2)
  - BLOOD CHOLESTEROL INCREASED [None]
  - ENZYME LEVEL INCREASED [None]
